FAERS Safety Report 17665795 (Version 1)
Quarter: 2020Q2

REPORT INFORMATION
  Report Type: Spontaneous
  Country: US (occurrence: US)
  Receive Date: 20200413
  Receipt Date: 20200413
  Transmission Date: 20200713
  Serious: No
  Sender: FDA-Public Use
  Company Number: None

PATIENT
  Sex: Female

DRUGS (1)
  1. EPOGEN [Suspect]
     Active Substance: ERYTHROPOIETIN
     Indication: ANAEMIA
     Dosage: ?          OTHER STRENGTH:10000 U/M;OTHER FREQUENCY:EVERY 14 DAYS;?
     Route: 058
     Dates: start: 20200322

REACTIONS (2)
  - Device leakage [None]
  - Wrong technique in product usage process [None]
